FAERS Safety Report 8984539 (Version 1)
Quarter: 2012Q4

REPORT INFORMATION
  Report Type: Report from Study
  Country: US (occurrence: US)
  Receive Date: 20121226
  Receipt Date: 20121226
  Transmission Date: 20130627
  Serious: Yes (Hospitalization)
  Sender: FDA-Public Use
  Company Number: US-PFIZER INC-2012323767

PATIENT
  Age: 72 Year
  Sex: Female
  Weight: 95.3 kg

DRUGS (3)
  1. REVATIO [Suspect]
     Dosage: UNK
  2. REMODULIN [Suspect]
     Indication: PULMONARY HYPERTENSION
     Dosage: 0.023ug/kg, 1 in 1 min
     Route: 042
     Dates: start: 20121005
  3. BABY ASA [Concomitant]
     Dosage: UNK

REACTIONS (1)
  - Deep vein thrombosis [Recovering/Resolving]
